FAERS Safety Report 23513441 (Version 1)
Quarter: 2024Q1

REPORT INFORMATION
  Report Type: Spontaneous
  Country: GB (occurrence: GB)
  Receive Date: 20240212
  Receipt Date: 20240212
  Transmission Date: 20240410
  Serious: Yes (Other)
  Sender: FDA-Public Use
  Company Number: GB-VERTEX PHARMACEUTICALS-2024-002082

PATIENT
  Sex: Female

DRUGS (3)
  1. ELEXACAFTOR\IVACAFTOR\TEZACAFTOR [Suspect]
     Active Substance: ELEXACAFTOR\IVACAFTOR\TEZACAFTOR
     Indication: Cystic fibrosis
     Dosage: 37.5MG IVA/25MG TEZA/50MG ELEXA DAILY
     Route: 048
  2. KALYDECO [Suspect]
     Active Substance: IVACAFTOR
     Indication: Cystic fibrosis
     Dosage: 75MG IVA
     Route: 048
  3. AMIKACIN [Concomitant]
     Active Substance: AMIKACIN
     Dosage: 500MG/2ML

REACTIONS (2)
  - Nasal polyps [Not Recovered/Not Resolved]
  - Diabetes mellitus [Not Recovered/Not Resolved]
